FAERS Safety Report 15074717 (Version 1)
Quarter: 2018Q2

REPORT INFORMATION
  Report Type: Spontaneous
  Country: US (occurrence: US)
  Receive Date: 20180627
  Receipt Date: 20180627
  Transmission Date: 20180711
  Serious: Yes (Other)
  Sender: FDA-Public Use
  Company Number: US-SAOL THERAPEUTICS-2017SAO01213

PATIENT
  Sex: Female

DRUGS (3)
  1. PRIALT [Suspect]
     Active Substance: ZICONOTIDE ACETATE
     Indication: MUSCLE SPASMS
     Dosage: UNK
     Dates: start: 201412, end: 2015
  2. BACLOFEN. [Suspect]
     Active Substance: BACLOFEN
     Indication: PAIN
     Dosage: 13.54 ?G, \DAY
  3. MORPHINE [Suspect]
     Active Substance: MORPHINE
     Dosage: 169.2 MG, \DAY
     Route: 037

REACTIONS (2)
  - Amnesia [Unknown]
  - Off label use [Unknown]
